FAERS Safety Report 24291913 (Version 1)
Quarter: 2024Q3

REPORT INFORMATION
  Report Type: Spontaneous
  Country: DE (occurrence: DE)
  Receive Date: 20240906
  Receipt Date: 20240906
  Transmission Date: 20241017
  Serious: Yes (Other)
  Sender: BRISTOL MYERS SQUIBB
  Company Number: DE-BRISTOL-MYERS SQUIBB COMPANY-2024-140345

PATIENT
  Age: 47 Year
  Sex: Male

DRUGS (3)
  1. OPDIVO [Suspect]
     Active Substance: NIVOLUMAB
     Indication: Malignant melanoma
     Dosage: RECEIVED 4 CYCLES OF 1 MG/KG BW NIVOLUMAB AND 3 MG/KG BW IPILIMUMAB AT 3-WEEK INTERVALS.
  2. YERVOY [Suspect]
     Active Substance: IPILIMUMAB
     Indication: Malignant melanoma
     Dosage: RECEIVED 4 CYCLES OF 1 MG/KG BW NIVOLUMAB AND 3 MG/KG BW IPILIMUMAB AT 3-WEEK INTERVALS.
  3. DENOSUMAB [Concomitant]
     Active Substance: DENOSUMAB
     Indication: Metastases to bone
     Route: 058

REACTIONS (5)
  - Malignant neoplasm progression [Unknown]
  - Sarcoidosis [Unknown]
  - Bronchitis chronic [Unknown]
  - Pulmonary embolism [Unknown]
  - Hair colour changes [Unknown]
